FAERS Safety Report 5109800-6 (Version None)
Quarter: 2006Q3

REPORT INFORMATION
  Report Type: 
  Country: None (occurrence: None)
  Receive Date: 20060915
  Receipt Date: 20060912
  Transmission Date: 20061208
  Serious: Yes (Life-Threatening)
  Sender: FDA-Public Use
  Company Number: HQWYE560212SEP06

PATIENT
  Age: 82 Year
  Sex: Female

DRUGS (1)
  1. TRICEF (CEFIXIME, TABLET) [Suspect]
     Indication: URINARY TRACT INFECTION
     Dosage: 200 MG DAILY FOR 7 DAYS ORAL
     Route: 048
     Dates: start: 20060719, end: 20060725

REACTIONS (4)
  - MEGACOLON [None]
  - PERITONITIS [None]
  - PSEUDOMEMBRANOUS COLITIS [None]
  - RENAL FAILURE [None]
